FAERS Safety Report 21269734 (Version 1)
Quarter: 2022Q3

REPORT INFORMATION
  Report Type: Spontaneous
  Country: US (occurrence: US)
  Receive Date: 20220830
  Receipt Date: 20220830
  Transmission Date: 20221027
  Serious: Yes (Other)
  Sender: FDA-Public Use
  Company Number: US-BEH-2022149044

PATIENT
  Sex: Male

DRUGS (2)
  1. HIZENTRA [Suspect]
     Active Substance: HUMAN IMMUNOGLOBULIN G
     Indication: Chronic sinusitis
     Dosage: 12 GRAM, QW
     Route: 058
     Dates: start: 20220621
  2. HIZENTRA [Suspect]
     Active Substance: HUMAN IMMUNOGLOBULIN G
     Indication: Immunodeficiency common variable

REACTIONS (6)
  - COVID-19 [Unknown]
  - COVID-19 [Unknown]
  - Nasopharyngitis [Unknown]
  - Pyrexia [Unknown]
  - No adverse event [Unknown]
  - Incorrect product administration duration [Unknown]
